FAERS Safety Report 8371912-1 (Version None)
Quarter: 2012Q2

REPORT INFORMATION
  Report Type: 
  Country: None (occurrence: None)
  Receive Date: 20120518
  Receipt Date: 20120508
  Transmission Date: 20120825
  Serious: Yes (Hospitalization)
  Sender: FDA-Public Use
  Company Number: DE-ROCHE-1018678

PATIENT
  Sex: Female
  Weight: 65 kg

DRUGS (7)
  1. BLINDED TMC435 (NS3/4A PROTEASE INHIBITOR) [Suspect]
     Indication: HEPATITIS C
     Dosage: FREQUENCY: EVERY DAY
     Route: 048
     Dates: start: 20110628, end: 20110920
  2. CHOLECALCIFEROL [Concomitant]
  3. PEGASYS [Suspect]
     Indication: HEPATITIS C
     Dosage: TREATMENT INTERRUPTED
     Route: 058
     Dates: start: 20110628
  4. PANTOPRAZOLE [Concomitant]
  5. COPEGUS [Suspect]
     Indication: HEPATITIS C
     Route: 048
     Dates: start: 20110628
  6. COPEGUS [Suspect]
     Dosage: REDUCED.
  7. PREGABALIN [Concomitant]

REACTIONS (2)
  - GUILLAIN-BARRE SYNDROME [None]
  - QUADRIPARESIS [None]
